FAERS Safety Report 12157540 (Version 1)
Quarter: 2016Q1

REPORT INFORMATION
  Report Type: Report from Study
  Country: JP (occurrence: JP)
  Receive Date: 20160308
  Receipt Date: 20160308
  Transmission Date: 20160526
  Serious: Yes (Other)
  Sender: FDA-Public Use
  Company Number: JP-009507513-1603JPN002945

PATIENT
  Age: 69 Year
  Sex: Male
  Weight: 54 kg

DRUGS (13)
  1. SELBEX [Concomitant]
     Active Substance: TEPRENONE
     Indication: CHRONIC GASTRITIS
     Dosage: 1.5 G, QD
     Route: 048
     Dates: start: 2003
  2. SIMEPREVIR [Suspect]
     Active Substance: SIMEPREVIR
     Indication: CHRONIC HEPATITIS C
     Dosage: 100 MG, QD
     Route: 048
     Dates: start: 20140904, end: 20141127
  3. ENALAPRIL MALEATE. [Concomitant]
     Active Substance: ENALAPRIL MALEATE
     Indication: HYPERTENSION
     Dosage: 5 MG, QD
     Route: 048
     Dates: start: 2003
  4. MECOBALAMIN [Concomitant]
     Active Substance: METHYLCOBALAMIN
     Indication: NEUROPATHY PERIPHERAL
     Dosage: 1.5 MG, QD
     Route: 048
     Dates: start: 2003
  5. SUMILU [Concomitant]
     Active Substance: FELBINAC
     Indication: PROPHYLAXIS
     Dosage: UNK
     Route: 061
     Dates: start: 2003
  6. GASTER [Concomitant]
     Active Substance: FAMOTIDINE
     Indication: CHRONIC GASTRITIS
     Dosage: 20 MG, QD
     Route: 048
     Dates: start: 2003
  7. KETOPROFEN. [Concomitant]
     Active Substance: KETOPROFEN
     Indication: PROPHYLAXIS
     Dosage: UNK
     Route: 062
     Dates: start: 2003
  8. COMELIAN [Concomitant]
     Active Substance: DILAZEP
     Indication: ANGINA PECTORIS
     Dosage: 300 MG, QD
     Route: 048
     Dates: start: 2003
  9. PEGINTRON [Suspect]
     Active Substance: PEGINTERFERON ALFA-2B
     Indication: CHRONIC HEPATITIS C
     Dosage: 1.4 MICROGRAM PER KILOGRAM, QW
     Route: 058
     Dates: start: 20140904, end: 20150212
  10. LOXOPROFEN [Concomitant]
     Active Substance: LOXOPROFEN
     Indication: PROPHYLAXIS
     Dosage: UNK, 1 IN 1 AS NECESSARY
     Route: 048
     Dates: start: 20130314
  11. RIBAVIRIN. [Suspect]
     Active Substance: RIBAVIRIN
     Indication: CHRONIC HEPATITIS C
     Dosage: 400 MG, QD
     Route: 048
     Dates: start: 20140904, end: 20150212
  12. HERBAL NOS [Concomitant]
     Active Substance: HERBALS
     Indication: MUSCLE SPASMS
     Dosage: 2.5 G, QD
     Route: 048
     Dates: start: 20090226
  13. CALONAL [Concomitant]
     Active Substance: ACETAMINOPHEN
     Indication: PROPHYLAXIS
     Dosage: UNK, 1 IN 1 AS NECESSARY
     Route: 048
     Dates: start: 20140904

REACTIONS (3)
  - Platelet count decreased [Recovered/Resolved]
  - Anaemia [Not Recovered/Not Resolved]
  - White blood cell count decreased [Recovered/Resolved]

NARRATIVE: CASE EVENT DATE: 20140911
